FAERS Safety Report 21310524 (Version 1)
Quarter: 2022Q3

REPORT INFORMATION
  Report Type: Spontaneous
  Country: US (occurrence: US)
  Receive Date: 20220909
  Receipt Date: 20220909
  Transmission Date: 20221027
  Serious: No
  Sender: FDA-Public Use
  Company Number: US-UNITED THERAPEUTICS-UNT-2022-020592

PATIENT
  Age: 17 Year
  Sex: Male

DRUGS (2)
  1. REMODULIN [Suspect]
     Active Substance: TREPROSTINIL
     Indication: Pulmonary arterial hypertension
     Dosage: UNK, CONTINUING
     Route: 058
     Dates: start: 20210907
  2. REMODULIN [Suspect]
     Active Substance: TREPROSTINIL
     Dosage: 0.0987 ?G/KG, CONTINUING
     Route: 058

REACTIONS (2)
  - Device infusion issue [Recovered/Resolved]
  - Infusion site reaction [Unknown]

NARRATIVE: CASE EVENT DATE: 20220906
